FAERS Safety Report 5085333-0 (Version None)
Quarter: 2006Q3

REPORT INFORMATION
  Report Type: 
  Country: None (occurrence: None)
  Receive Date: 20060816
  Receipt Date: 20060801
  Transmission Date: 20061208
  Serious: Yes (Death)
  Sender: FDA-Public Use
  Company Number: AR-2006-021288

PATIENT
  Age: 42 Year
  Sex: Female

DRUGS (1)
  1. BETAFERON (INTERFERON BETA - 1B) INJECTION, 250UG [Suspect]
     Dosage: 8 MIU
     Dates: start: 20030801, end: 20060601

REACTIONS (1)
  - PNEUMONIA [None]
